FAERS Safety Report 6901702-5 (Version None)
Quarter: 2010Q3

REPORT INFORMATION
  Report Type: 
  Country: None (occurrence: None)
  Receive Date: 20100803
  Receipt Date: 20080309
  Transmission Date: 20110219
  Serious: Yes (Other)
  Sender: FDA-Public Use
  Company Number: US-PFIZER INC-2008023152

PATIENT
  Sex: Female
  Weight: 57.727 kg

DRUGS (3)
  1. LYRICA [Suspect]
     Indication: PAIN
     Dates: start: 20080307, end: 20080309
  2. LUNESTA [Concomitant]
  3. STADOL [Concomitant]

REACTIONS (3)
  - BURNING SENSATION [None]
  - URTICARIA [None]
  - VOMITING [None]
